FAERS Safety Report 6376296-6 (Version None)
Quarter: 2009Q3

REPORT INFORMATION
  Report Type: 
  Country: None (occurrence: None)
  Receive Date: 20090923
  Receipt Date: 20090923
  Transmission Date: 20100115
  Serious: No
  Sender: FDA-Public Use
  Company Number: None

PATIENT
  Age: 87 Year
  Sex: Female
  Weight: 47.6 kg

DRUGS (15)
  1. MEROPERNEM [Suspect]
     Indication: OTITIS EXTERNA
     Dosage: 500 MG IV Q12H
     Route: 042
     Dates: start: 20090413, end: 20090415
  2. VANCOMYCIN [Concomitant]
  3. ALBUTEROL [Concomitant]
  4. GKERGINE [Concomitant]
  5. ASPIRIN [Concomitant]
  6. PRAVUSTATIN [Concomitant]
  7. CARBIDOPUL [Concomitant]
  8. LEVODOPA [Concomitant]
  9. ZNSULFATE [Concomitant]
  10. DOLUSULE [Concomitant]
  11. APAP TAB [Concomitant]
  12. ASCORBIC ACID [Concomitant]
  13. LEVOTHYROXINE SODIUM [Concomitant]
  14. SENNA [Concomitant]
  15. POYLLICER [Concomitant]

REACTIONS (2)
  - CONDITION AGGRAVATED [None]
  - RASH [None]
